FAERS Safety Report 8405807-1 (Version None)
Quarter: 2012Q2

REPORT INFORMATION
  Report Type: 
  Country: None (occurrence: None)
  Receive Date: 20120529
  Receipt Date: 20051214
  Transmission Date: 20120825
  Serious: Yes (Life-Threatening, Hospitalization)
  Sender: FDA-Public Use
  Company Number: 15691-USA-05-3161

PATIENT
  Age: 50 Year
  Sex: Male

DRUGS (5)
  1. SPIRONOLACTONE [Concomitant]
  2. HIDRALAZINE (HYDRALAZINE) [Concomitant]
  3. TOLVAPTAN (TOLVAPTAN(V4.1)) 30MG [Suspect]
     Indication: CARDIAC FAILURE CONGESTIVE
     Dosage: 30 MG, QD, ORAL
     Route: 048
     Dates: start: 20040602
  4. ISOSORBIDE MONONITRATE [Concomitant]
  5. FUROSEMIDE [Concomitant]

REACTIONS (10)
  - PULMONARY CONGESTION [None]
  - OLIGURIA [None]
  - BLOOD SODIUM DECREASED [None]
  - SYNCOPE [None]
  - HEPATIC CONGESTION [None]
  - CARDIAC FAILURE [None]
  - BUNDLE BRANCH BLOCK LEFT [None]
  - HYPOTENSION [None]
  - ATRIOVENTRICULAR BLOCK FIRST DEGREE [None]
  - CONDITION AGGRAVATED [None]
